FAERS Safety Report 15136229 (Version 1)
Quarter: 2018Q4

REPORT INFORMATION
  Report Type: Spontaneous
  Country: US (occurrence: US)
  Receive Date: 20180712
  Receipt Date: 20180712
  Transmission Date: 20190204
  Serious: No
  Sender: FDA-Public Use
  Company Number: US-LYNE LABORATORIES INC.-2051892

PATIENT
  Age: 75 Year
  Sex: Female
  Weight: 75.91 kg

DRUGS (17)
  1. LABETALOL [Concomitant]
     Active Substance: LABETALOL\LABETALOL HYDROCHLORIDE
  2. MELATONIN [Concomitant]
     Active Substance: MELATONIN
  3. VITAMIN D3 [Concomitant]
     Active Substance: CHOLECALCIFEROL
  4. MAGNESIUM [Concomitant]
     Active Substance: MAGNESIUM
  5. TRIAMCINOLONE ACETONIDE. [Suspect]
     Active Substance: TRIAMCINOLONE ACETONIDE
     Route: 061
     Dates: start: 20170927
  6. MULTIVITAMIN [Concomitant]
     Active Substance: VITAMINS
  7. OMEPRAZOLE. [Concomitant]
     Active Substance: OMEPRAZOLE
  8. IMODIUM [Concomitant]
     Active Substance: LOPERAMIDE HYDROCHLORIDE
  9. CITALOPRAM [Concomitant]
     Active Substance: CITALOPRAM HYDROBROMIDE
  10. CLONIDINE. [Concomitant]
     Active Substance: CLONIDINE
  11. ALLOPURINOL. [Concomitant]
     Active Substance: ALLOPURINOL
  12. DIPHENOXYLATE HYDROCHLORIDE AND ATROPINE SULFATE [Concomitant]
     Active Substance: ATROPINE SULFATE\DIPHENOXYLATE HYDROCHLORIDE
  13. GABAPENTIN. [Concomitant]
     Active Substance: GABAPENTIN
  14. ATORVASTATIN CALCIUM. [Concomitant]
     Active Substance: ATORVASTATIN CALCIUM
  15. CHOLESTYRAMINE. [Concomitant]
     Active Substance: CHOLESTYRAMINE
  16. KLOR-CON [Concomitant]
     Active Substance: POTASSIUM CHLORIDE
  17. PROBIOTIC [Concomitant]
     Active Substance: PROBIOTICS NOS

REACTIONS (1)
  - Drug ineffective [Not Recovered/Not Resolved]

NARRATIVE: CASE EVENT DATE: 20170927
